FAERS Safety Report 10765216 (Version 4)
Quarter: 2015Q3

REPORT INFORMATION
  Report Type: Report from Study
  Country: BR (occurrence: BR)
  Receive Date: 20150205
  Receipt Date: 20150814
  Transmission Date: 20151125
  Serious: Yes (Other)
  Sender: FDA-Public Use
  Company Number: BR-ABBVIE-15K-020-1341174-00

PATIENT
  Sex: Female
  Weight: 86 kg

DRUGS (11)
  1. PURAN [Concomitant]
     Active Substance: LEVOTHYROXINE SODIUM
     Indication: HYPOTHYROIDISM
  2. ARAVA [Concomitant]
     Active Substance: LEFLUNOMIDE
     Indication: RHEUMATIC DISORDER
     Route: 048
     Dates: start: 2005
  3. METFORMIN [Concomitant]
     Active Substance: METFORMIN HYDROCHLORIDE
     Indication: DIABETES MELLITUS
     Route: 048
     Dates: start: 201503
  4. ARADOIS H [Concomitant]
     Active Substance: HYDROCHLOROTHIAZIDE\LOSARTAN POTASSIUM
     Indication: HYPERTENSION
  5. SLOW K [Concomitant]
     Active Substance: POTASSIUM CHLORIDE
     Indication: CARDIAC DISORDER
     Dosage: AFTER LUNCH
     Route: 048
     Dates: start: 2012
  6. HUMIRA [Suspect]
     Active Substance: ADALIMUMAB
     Indication: RHEUMATOID ARTHRITIS
     Route: 058
     Dates: start: 20140924
  7. ARAVA [Concomitant]
     Active Substance: LEFLUNOMIDE
     Indication: THYROID DISORDER
     Route: 048
     Dates: start: 2013
  8. PURAN [Concomitant]
     Active Substance: LEVOTHYROXINE SODIUM
     Indication: THYROID DISORDER
     Dosage: IN THE MORNING
     Route: 048
  9. ARADOIS H [Concomitant]
     Active Substance: HYDROCHLOROTHIAZIDE\LOSARTAN POTASSIUM
     Indication: HYPERTENSION
     Dosage: 100MG/25MG
     Route: 048
     Dates: start: 2010
  10. ARAVA [Concomitant]
     Active Substance: LEFLUNOMIDE
     Indication: ARTHRITIS
  11. ARADOIS H [Concomitant]
     Active Substance: HYDROCHLOROTHIAZIDE\LOSARTAN POTASSIUM
     Indication: INTRACARDIAC MASS
     Dosage: 100 MG/25 MG IN MORNING
     Route: 048
     Dates: start: 2010

REACTIONS (15)
  - Weight decreased [Recovered/Resolved]
  - Nervousness [Recovered/Resolved]
  - Swelling [Recovered/Resolved]
  - Intracardiac mass [Unknown]
  - Injection site pruritus [Recovered/Resolved]
  - Echocardiogram abnormal [Unknown]
  - Anxiety [Recovered/Resolved]
  - Malaise [Recovered/Resolved]
  - Blood pressure increased [Recovered/Resolved]
  - Fatigue [Not Recovered/Not Resolved]
  - Injection site haematoma [Recovered/Resolved]
  - Fatigue [Not Recovered/Not Resolved]
  - Cardiac disorder [Unknown]
  - Somnolence [Recovered/Resolved]
  - Wrong technique in product usage process [Recovered/Resolved]

NARRATIVE: CASE EVENT DATE: 2014
